FAERS Safety Report 23273602 (Version 2)
Quarter: 2023Q4

REPORT INFORMATION
  Report Type: Spontaneous
  Country: AR (occurrence: AR)
  Receive Date: 20231207
  Receipt Date: 20231218
  Transmission Date: 20240110
  Serious: Yes (Other)
  Sender: FDA-Public Use
  Company Number: AR-002147023-NVSC2020AR193456

PATIENT
  Age: 5 Year
  Sex: Female
  Weight: 13.6 kg

DRUGS (6)
  1. OMNITROPE [Suspect]
     Active Substance: SOMATROPIN
     Dosage: 0.45 MG, QD
     Route: 058
     Dates: start: 20200515
  2. OMNITROPE [Suspect]
     Active Substance: SOMATROPIN
     Indication: Small for dates baby
     Dosage: 5 MG, QD
     Route: 058
     Dates: start: 20200515, end: 202006
  3. OMNITROPE [Suspect]
     Active Substance: SOMATROPIN
     Dosage: 0.2 MG, QD
     Route: 058
  4. OMNITROPE [Suspect]
     Active Substance: SOMATROPIN
     Dosage: 0.25 MG, QD
     Route: 058
     Dates: start: 202006
  5. OMNITROPE [Suspect]
     Active Substance: SOMATROPIN
     Dosage: 0.3 MG, QD
     Route: 058
     Dates: start: 202204
  6. OMNITROPE [Suspect]
     Active Substance: SOMATROPIN
     Dosage: 0.35 MG, QD
     Route: 058
     Dates: start: 20220804

REACTIONS (13)
  - Growth retardation [Unknown]
  - Retinal vascular disorder [Unknown]
  - Axillary pain [Not Recovered/Not Resolved]
  - Acne [Not Recovered/Not Resolved]
  - Photosensitivity reaction [Recovering/Resolving]
  - Ear pain [Recovering/Resolving]
  - Headache [Unknown]
  - Vitamin D deficiency [Unknown]
  - Joint swelling [Not Recovered/Not Resolved]
  - Infection [Not Recovered/Not Resolved]
  - Pelvic pain [Unknown]
  - Abdominal pain [Unknown]
  - Product storage error [Unknown]

NARRATIVE: CASE EVENT DATE: 20200601
